FAERS Safety Report 24422667 (Version 1)
Quarter: 2024Q4

REPORT INFORMATION
  Report Type: Other
  Country: CA (occurrence: CA)
  Receive Date: 20241010
  Receipt Date: 20241010
  Transmission Date: 20250115
  Serious: Yes (Other)
  Sender: BIOCON
  Company Number: CA-BIOCON BIOLOGICS LIMITED-BBL2024007397

PATIENT

DRUGS (1)
  1. HULIO [Suspect]
     Active Substance: ADALIMUMAB-FKJP
     Indication: Crohn^s disease
     Dosage: 40 MG, EVERY 2 WEEKS
     Route: 058

REACTIONS (14)
  - Burning sensation [Unknown]
  - Panic attack [Unknown]
  - Nasal congestion [Unknown]
  - Hyperhidrosis [Unknown]
  - Anxiety [Unknown]
  - Cough [Unknown]
  - Injection site pain [Unknown]
  - COVID-19 [Unknown]
  - Nasopharyngitis [Unknown]
  - Influenza [Unknown]
  - Pharyngitis [Unknown]
  - Lower respiratory tract infection [Unknown]
  - Therapy interrupted [Unknown]
  - Product dose omission issue [Unknown]
